FAERS Safety Report 17426236 (Version 2)
Quarter: 2020Q3

REPORT INFORMATION
  Report Type: Spontaneous
  Country: JP (occurrence: JP)
  Receive Date: 20200217
  Receipt Date: 20200808
  Transmission Date: 20201102
  Serious: Yes (Hospitalization, Other)
  Sender: FDA-Public Use
  Company Number: JP-ASTRAZENECA-2020SE23716

PATIENT
  Age: 20 Year
  Sex: Female

DRUGS (1)
  1. BIPRESSO (QUETIAPINE FUMARATE) [Suspect]
     Active Substance: QUETIAPINE FUMARATE
     Indication: BIPOLAR DISORDER
     Dosage: 20.0DF UNKNOWN
     Route: 048

REACTIONS (2)
  - Coma [Unknown]
  - Overdose [Unknown]
